FAERS Safety Report 24106165 (Version 1)
Quarter: 2024Q3

REPORT INFORMATION
  Report Type: Spontaneous
  Country: GB (occurrence: IE)
  Receive Date: 20240717
  Receipt Date: 20240717
  Transmission Date: 20241017
  Serious: Yes (Other)
  Sender: ALEXION PHARMACEUTICALS
  Company Number: IE-AstraZeneca-CH-00658593A

PATIENT
  Sex: Female

DRUGS (1)
  1. ULTOMIRIS [Suspect]
     Active Substance: RAVULIZUMAB-CWVZ
     Indication: Paroxysmal nocturnal haemoglobinuria
     Dosage: UNK
     Route: 065

REACTIONS (3)
  - Extravascular haemolysis [Unknown]
  - Anaemia [Unknown]
  - Drug ineffective [Unknown]
